FAERS Safety Report 4382055-6 (Version None)
Quarter: 2004Q2

REPORT INFORMATION
  Report Type: 
  Country: None (occurrence: None)
  Receive Date: 20040603
  Receipt Date: 20030411
  Transmission Date: 20050107
  Serious: Yes (Other)
  Sender: FDA-Public Use
  Company Number: 200313446US

PATIENT

DRUGS (3)
  1. HEPARIN-FRACTION, SODIUM SALT (LEVENOX) SOLUTION FOR INJECTION [Suspect]
     Indication: PROPHYLAXIS
     Dosage: SC
     Route: 058
  2. HEPARIN-FRACTION, SODIUM SALT (LEVENOX) SOLUTION FOR INJECTION [Suspect]
     Indication: SURGERY
     Dosage: SC
     Route: 058
  3. KETOROLAC TROMETHAMINE (TORADOL) [Concomitant]

REACTIONS (1)
  - POST PROCEDURAL HAEMORRHAGE [None]
